FAERS Safety Report 7702284-0 (Version None)
Quarter: 2011Q3

REPORT INFORMATION
  Report Type: 
  Country: None (occurrence: None)
  Receive Date: 20110822
  Receipt Date: 20110818
  Transmission Date: 20111222
  Serious: Yes (Hospitalization, Disabling)
  Sender: FDA-Public Use
  Company Number: DE-BAYER-2011-074682

PATIENT
  Age: 89 Year
  Sex: Female
  Weight: 48 kg

DRUGS (1)
  1. AVELOX [Suspect]
     Indication: CHRONIC OBSTRUCTIVE PULMONARY DISEASE
     Dosage: 400 MG, QD
     Route: 048
     Dates: start: 20110201, end: 20110206

REACTIONS (4)
  - DISORIENTATION [None]
  - CONFUSIONAL STATE [None]
  - SUICIDAL IDEATION [None]
  - VISUAL ACUITY REDUCED TRANSIENTLY [None]
